FAERS Safety Report 8071997-6 (Version None)
Quarter: 2012Q1

REPORT INFORMATION
  Report Type: 
  Country: None (occurrence: None)
  Receive Date: 20120119
  Receipt Date: 20120111
  Transmission Date: 20120608
  Serious: Yes (Hospitalization)
  Sender: FDA-Public Use
  Company Number: DSJ-2011-26893

PATIENT
  Age: 33 Year
  Sex: Female
  Weight: 51.8 kg

DRUGS (7)
  1. KERLONE [Suspect]
     Indication: HYPERTENSION
     Dates: end: 20110418
  2. OLMESARTAN MEDOXOMIL [Suspect]
     Indication: HYPERTENSION
     Dates: end: 20110418
  3. LASIX [Suspect]
     Indication: HYPERTENSION
     Dates: end: 20110418
  4. AMLODIPINE BESYLATE [Suspect]
     Indication: HYPERTENSION
     Dates: end: 20110418
  5. RASILEZ (ALISKIREN) (ALISKIREN) [Suspect]
     Indication: HYPERTENSION
     Dates: end: 20110418
  6. TRICHLORMETHIAZIDE [Suspect]
     Indication: HYPERTENSION
     Dates: end: 20110418
  7. OMEPRAZOLE [Suspect]
     Indication: GASTRITIS PROPHYLAXIS
     Dates: end: 20110418

REACTIONS (6)
  - ERYTHEMA [None]
  - MALAISE [None]
  - DRUG ERUPTION [None]
  - FIBROMUSCULAR DYSPLASIA [None]
  - RENAL ARTERY STENOSIS [None]
  - RENAL FAILURE ACUTE [None]
